FAERS Safety Report 4972825-5 (Version None)
Quarter: 2006Q2

REPORT INFORMATION
  Report Type: 
  Country: None (occurrence: None)
  Receive Date: 20060414
  Receipt Date: 20060404
  Transmission Date: 20061013
  Serious: Yes (Hospitalization, Other)
  Sender: FDA-Public Use
  Company Number: FR-JNJFOC-20060401148

PATIENT
  Age: 59 Year
  Sex: Female

DRUGS (9)
  1. RISPERDAL CONSTA [Suspect]
     Route: 030
     Dates: start: 20050815, end: 20050915
  2. XANAX [Suspect]
     Indication: DRUG USE FOR UNKNOWN INDICATION
     Route: 048
  3. IXEL [Suspect]
     Indication: DRUG USE FOR UNKNOWN INDICATION
     Route: 048
  4. TRANDATE [Suspect]
     Indication: DRUG USE FOR UNKNOWN INDICATION
     Route: 048
  5. ANTADYS [Suspect]
     Indication: DRUG USE FOR UNKNOWN INDICATION
     Route: 048
  6. CIRKAN [Suspect]
     Route: 048
  7. CIRKAN [Suspect]
     Route: 048
  8. CIRKAN [Suspect]
     Route: 048
  9. CIRKAN [Suspect]
     Indication: DRUG USE FOR UNKNOWN INDICATION
     Route: 048

REACTIONS (4)
  - HYPERTONIA [None]
  - OEDEMA [None]
  - RENAL FAILURE ACUTE [None]
  - URETERIC STENOSIS [None]
